FAERS Safety Report 20483240 (Version 1)
Quarter: 2022Q1

REPORT INFORMATION
  Report Type: Other
  Country: IT (occurrence: None)
  Receive Date: 20220217
  Receipt Date: 20220217
  Transmission Date: 20220424
  Serious: Yes (Other)
  Sender: FDA-Public Use
  Company Number: IT-ROCHE-3021943

PATIENT

DRUGS (3)
  1. ATEZOLIZUMAB [Suspect]
     Active Substance: ATEZOLIZUMAB
     Indication: Non-small cell lung cancer
     Route: 065
  2. PEMBROLIZUMAB [Suspect]
     Active Substance: PEMBROLIZUMAB
     Indication: Non-small cell lung cancer
     Route: 065
  3. NIVOLUMAB [Suspect]
     Active Substance: NIVOLUMAB
     Indication: Non-small cell lung cancer
     Route: 065

REACTIONS (15)
  - Thyroid disorder [Unknown]
  - Pneumonitis [Unknown]
  - Diarrhoea [Unknown]
  - Liver disorder [Unknown]
  - Myocarditis [Unknown]
  - Asthenia [Unknown]
  - Hypophysitis [Unknown]
  - Nausea [Unknown]
  - Vomiting [Unknown]
  - Nervous system disorder [Unknown]
  - Pyrexia [Unknown]
  - Skin disorder [Unknown]
  - Blood disorder [Unknown]
  - Cystitis [Unknown]
  - Pancreatic disorder [Unknown]
